FAERS Safety Report 24039573 (Version 1)
Quarter: 2024Q3

REPORT INFORMATION
  Report Type: Spontaneous
  Country: CN (occurrence: CN)
  Receive Date: 20240702
  Receipt Date: 20240702
  Transmission Date: 20241017
  Serious: Yes (Other)
  Sender: ROCHE
  Company Number: CN-ROCHE-10000006379

PATIENT
  Age: 67 Year
  Sex: Female

DRUGS (5)
  1. ALECTINIB [Suspect]
     Active Substance: ALECTINIB
     Indication: Lung neoplasm malignant
     Route: 065
  2. ALECTINIB [Suspect]
     Active Substance: ALECTINIB
     Route: 065
  3. ALECTINIB [Suspect]
     Active Substance: ALECTINIB
     Route: 065
  4. ALECTINIB [Suspect]
     Active Substance: ALECTINIB
     Dosage: FINALLY REACHING A THERAPEUTIC DOSE OF 1200?MG/DAY
     Route: 065
  5. PREDNISONE [Concomitant]
     Active Substance: PREDNISONE

REACTIONS (2)
  - Stevens-Johnson syndrome [Recovered/Resolved]
  - Toxic epidermal necrolysis [Recovered/Resolved]
